FAERS Safety Report 16806126 (Version 1)
Quarter: 2019Q3

REPORT INFORMATION
  Report Type: Spontaneous
  Country: US (occurrence: US)
  Receive Date: 20190913
  Receipt Date: 20190913
  Transmission Date: 20191005
  Serious: No
  Sender: FDA-Public Use
  Company Number: US-ALNYLAM PHARMACEUTICALS, INC.-ALN-2019-000622

PATIENT
  Age: 65 Year
  Sex: Male

DRUGS (1)
  1. ONPATTRO [Suspect]
     Active Substance: PATISIRAN SODIUM
     Indication: HEREDITARY NEUROPATHIC AMYLOIDOSIS
     Dosage: UNK
     Route: 042
     Dates: start: 20190702

REACTIONS (6)
  - Abdominal pain upper [Unknown]
  - Back pain [Unknown]
  - Infusion related reaction [Unknown]
  - Nausea [Unknown]
  - Pain in extremity [Unknown]
  - Depressed mood [Unknown]

NARRATIVE: CASE EVENT DATE: 20190813
